FAERS Safety Report 23768343 (Version 1)
Quarter: 2024Q2

REPORT INFORMATION
  Report Type: Spontaneous
  Country: US (occurrence: US)
  Receive Date: 20240422
  Receipt Date: 20240422
  Transmission Date: 20240716
  Serious: No
  Sender: FDA-Public Use
  Company Number: US-MELINTA THERAPEUTICS, LLC-US-MLNT-23-00475

PATIENT
  Sex: Female

DRUGS (7)
  1. METOPROLOL SUCCINATE [Suspect]
     Active Substance: METOPROLOL SUCCINATE
     Indication: Mitral valve prolapse
     Dosage: 50 MILLIGRAM ONCE A DAY AT NIGHT
     Route: 048
  2. METOPROLOL SUCCINATE [Suspect]
     Active Substance: METOPROLOL SUCCINATE
     Indication: Palpitations
  3. METOPROLOL SUCCINATE [Suspect]
     Active Substance: METOPROLOL SUCCINATE
     Indication: Extrasystoles
  4. TOPROL XL [Suspect]
     Active Substance: METOPROLOL SUCCINATE
     Indication: Mitral valve prolapse
     Dosage: NOT PROVIDED.
     Route: 048
  5. TOPROL XL [Suspect]
     Active Substance: METOPROLOL SUCCINATE
     Indication: Palpitations
  6. TOPROL XL [Suspect]
     Active Substance: METOPROLOL SUCCINATE
     Indication: Extrasystoles
  7. CORGARD [Concomitant]
     Active Substance: NADOLOL
     Indication: Product used for unknown indication
     Dosage: NOT PROVIDED

REACTIONS (3)
  - Adverse drug reaction [Unknown]
  - Drug ineffective for unapproved indication [Unknown]
  - Off label use [Unknown]
